FAERS Safety Report 5046557-1 (Version None)
Quarter: 2006Q2

REPORT INFORMATION
  Report Type: 
  Country: None (occurrence: None)
  Receive Date: 20060630
  Receipt Date: 20060626
  Transmission Date: 20061013
  Serious: Yes (Life-Threatening, Other)
  Sender: FDA-Public Use
  Company Number: PHBS2005GB06328

PATIENT
  Age: 47 Year
  Sex: Male

DRUGS (11)
  1. PROTIUM(PANTOPRAZOLE) [Suspect]
  2. RIFAMPICIAN (NGX) (RIFAMPICIAN) [Suspect]
     Dosage: INTRAVENOUS
     Route: 042
  3. ZYVOX [Suspect]
     Indication: BACTERIAL INFECTION
     Dosage: 1200 MG/DAY, INTRAVENOUS
     Route: 042
     Dates: start: 20041017, end: 20041020
  4. DOXAZOSIN (DOXAZOSIN) [Suspect]
     Dosage: ORAL
     Route: 048
  5. PROCYCLIDINE (PROCYLIDINE) [Suspect]
     Dosage: ORAL
     Route: 048
  6. ATENOLOL [Suspect]
     Dosage: ORAL
     Route: 048
  7. FENTANYL [Suspect]
     Dosage: INTRAVENOUS
     Route: 042
  8. AMISULPRIDE (AMISULPRIDE) [Suspect]
     Dosage: ORAL
     Route: 048
  9. OMEPRAZOLE [Suspect]
  10. ZOPICLONE (ZOPICLONE) [Suspect]
  11. HALOPERIDOL [Suspect]

REACTIONS (2)
  - DRUG INTERACTION [None]
  - HYPERTENSION [None]
